FAERS Safety Report 22840652 (Version 2)
Quarter: 2024Q3

REPORT INFORMATION
  Report Type: Spontaneous
  Country: CH (occurrence: CH)
  Receive Date: 20230819
  Receipt Date: 20240727
  Transmission Date: 20241017
  Serious: Yes (Hospitalization, Other)
  Sender: ACCORD
  Company Number: None

PATIENT
  Age: 59 Year
  Sex: Female

DRUGS (28)
  1. PEMETREXED DISODIUM [Suspect]
     Active Substance: PEMETREXED DISODIUM
     Indication: Lung adenocarcinoma
     Dosage: IN TOTAL
     Dates: start: 20230315, end: 20230315
  2. PEMBROLIZUMAB [Suspect]
     Active Substance: PEMBROLIZUMAB
     Indication: Lung adenocarcinoma
     Dosage: IN TOTAL, INTRAVENOUS BOLUS
     Dates: start: 20230315, end: 20230315
  3. SYMBICORT [Concomitant]
     Active Substance: BUDESONIDE\FORMOTEROL FUMARATE DIHYDRATE
  4. APIXABAN [Concomitant]
     Active Substance: APIXABAN
  5. LEUCOVORIN CALCIUM [Concomitant]
     Active Substance: LEUCOVORIN CALCIUM
  6. VITAMIN B12 [Concomitant]
     Active Substance: CYANOCOBALAMIN
  7. BIOTIN [Concomitant]
     Active Substance: BIOTIN
  8. MOMETASONE FUROATE [Concomitant]
     Active Substance: MOMETASONE FUROATE
  9. PEGFILGRASTIM [Concomitant]
     Active Substance: PEGFILGRASTIM
  10. DEXAMETHASONE [Concomitant]
     Active Substance: DEXAMETHASONE
  11. IOHEXOL [Concomitant]
     Active Substance: IOHEXOL
  12. CARBOPLATIN [Concomitant]
     Active Substance: CARBOPLATIN
     Indication: Lung adenocarcinoma
     Dates: start: 20230315, end: 20240315
  13. CARBOPLATIN [Concomitant]
     Active Substance: CARBOPLATIN
     Indication: Lung adenocarcinoma
     Dates: start: 20230413, end: 20240413
  14. CARBOPLATIN [Concomitant]
     Active Substance: CARBOPLATIN
     Indication: Lung adenocarcinoma
     Dates: start: 20230504, end: 20240504
  15. CARBOPLATIN [Concomitant]
     Active Substance: CARBOPLATIN
     Indication: Lung adenocarcinoma
     Dates: start: 20230526, end: 20240526
  16. PEMBROLIZUMAB [Suspect]
     Active Substance: PEMBROLIZUMAB
     Indication: Lung adenocarcinoma
     Dosage: IN TOTAL, INTRAVENOUS BOLUS
     Dates: start: 20230413, end: 20230413
  17. PEMBROLIZUMAB [Suspect]
     Active Substance: PEMBROLIZUMAB
     Indication: Lung adenocarcinoma
     Dosage: IN TOTAL, INTRAVENOUS BOLUS
     Dates: start: 20230504, end: 20230504
  18. PEMBROLIZUMAB [Suspect]
     Active Substance: PEMBROLIZUMAB
     Indication: Lung adenocarcinoma
     Dosage: IN TOTAL, INTRAVENOUS BOLUS
     Dates: start: 20230526, end: 20230526
  19. PEMBROLIZUMAB [Suspect]
     Active Substance: PEMBROLIZUMAB
     Indication: Lung adenocarcinoma
     Dosage: IN TOTAL, INTRAVENOUS BOLUS
     Dates: start: 20230623, end: 20230623
  20. PEMBROLIZUMAB [Suspect]
     Active Substance: PEMBROLIZUMAB
     Indication: Lung adenocarcinoma
     Dosage: IN TOTAL, INTRAVENOUS BOLUS
     Dates: start: 20230714, end: 20230714
  21. PEMETREXED DISODIUM [Suspect]
     Active Substance: PEMETREXED DISODIUM
     Indication: Lung adenocarcinoma
     Dosage: IN TOTAL
     Dates: start: 20230504, end: 20230504
  22. PEMETREXED DISODIUM [Suspect]
     Active Substance: PEMETREXED DISODIUM
     Indication: Lung adenocarcinoma
     Dosage: IN TOTAL
     Dates: start: 20230413, end: 20230413
  23. PEMETREXED DISODIUM [Suspect]
     Active Substance: PEMETREXED DISODIUM
     Indication: Lung adenocarcinoma
     Dosage: IN TOTAL
     Dates: start: 20230526, end: 20230526
  24. PEMETREXED DISODIUM [Suspect]
     Active Substance: PEMETREXED DISODIUM
     Indication: Lung adenocarcinoma
     Dosage: IN TOTAL
     Dates: start: 20230623, end: 20230623
  25. PEMETREXED DISODIUM [Suspect]
     Active Substance: PEMETREXED DISODIUM
     Indication: Lung adenocarcinoma
     Dosage: IN TOTAL
     Dates: start: 20230714, end: 20230714
  26. PEMBROLIZUMAB [Suspect]
     Active Substance: PEMBROLIZUMAB
     Indication: Lung adenocarcinoma
     Dosage: IN TOTAL, INTRAVENOUS BOLUS
     Dates: start: 20231030, end: 20231030
  27. PEMBROLIZUMAB [Suspect]
     Active Substance: PEMBROLIZUMAB
     Indication: Lung adenocarcinoma
     Dosage: IN TOTAL, INTRAVENOUS BOLUS
     Dates: start: 20231120, end: 20231120
  28. PEMBROLIZUMAB [Suspect]
     Active Substance: PEMBROLIZUMAB
     Indication: Lung adenocarcinoma
     Dosage: IN TOTAL, INTRAVENOUS BOLUS
     Dates: start: 20231211, end: 20231211

REACTIONS (4)
  - Rash maculo-papular [Recovered/Resolved]
  - Febrile neutropenia [Recovered/Resolved]
  - Dermatitis bullous [Recovering/Resolving]
  - Agranulocytosis [Recovered/Resolved]

NARRATIVE: CASE EVENT DATE: 20230322
